FAERS Safety Report 17020138 (Version 1)
Quarter: 2019Q4

REPORT INFORMATION
  Report Type: Spontaneous
  Country: DE (occurrence: DE)
  Receive Date: 20191112
  Receipt Date: 20191112
  Transmission Date: 20200122
  Serious: Yes (Other)
  Sender: FDA-Public Use
  Company Number: DE-B.I. PHARMACEUTICALS,INC./RIDGEFIELD-2019-12-112514

PATIENT
  Sex: Male

DRUGS (1)
  1. SIFROL [Suspect]
     Active Substance: PRAMIPEXOLE
     Indication: PROGRESSIVE SUPRANUCLEAR PALSY
     Dosage: UNK
     Route: 065
     Dates: start: 201908

REACTIONS (7)
  - Gait disturbance [Unknown]
  - Eye disorder [Unknown]
  - Fall [Unknown]
  - Progressive supranuclear palsy [Unknown]
  - Product use in unapproved indication [Unknown]
  - Condition aggravated [Unknown]
  - Balance disorder [Unknown]

NARRATIVE: CASE EVENT DATE: 2019
